FAERS Safety Report 15229030 (Version 2)
Quarter: 2018Q3

REPORT INFORMATION
  Report Type: Report from Study
  Country: US (occurrence: US)
  Receive Date: 20180801
  Receipt Date: 20180918
  Transmission Date: 20181010
  Serious: No
  Sender: FDA-Public Use
  Company Number: US-AMGEN-USASL2018067467

PATIENT
  Age: 75 Year
  Sex: Female

DRUGS (4)
  1. NPLATE [Suspect]
     Active Substance: ROMIPLOSTIM
     Indication: ESSENTIAL THROMBOCYTHAEMIA
  2. NEUPOGEN [Suspect]
     Active Substance: FILGRASTIM
     Indication: IRON DEFICIENCY ANAEMIA
     Dosage: UNK
     Route: 065
  3. NPLATE [Suspect]
     Active Substance: ROMIPLOSTIM
     Indication: IRON DEFICIENCY ANAEMIA
     Dosage: UNK
     Route: 065
  4. NEUPOGEN [Suspect]
     Active Substance: FILGRASTIM
     Indication: ESSENTIAL THROMBOCYTHAEMIA

REACTIONS (1)
  - Off label use [Unknown]
